FAERS Safety Report 9854025 (Version 2)
Quarter: 2014Q1

REPORT INFORMATION
  Report Type: Spontaneous
  Country: PT (occurrence: PT)
  Receive Date: 20140129
  Receipt Date: 20140214
  Transmission Date: 20141002
  Serious: Yes (Death, Hospitalization)
  Sender: FDA-Public Use
  Company Number: PT-ABBVIE-14P-130-1194559-00

PATIENT
  Age: 0 Day
  Sex: Male

DRUGS (1)
  1. HUMIRA [Suspect]
     Indication: MATERNAL EXPOSURE TIMING UNSPECIFIED
     Route: 064

REACTIONS (22)
  - Gastric haemorrhage [Fatal]
  - Intestinal haemorrhage [Fatal]
  - Asphyxia [Recovered/Resolved]
  - Hypotonia [Fatal]
  - Poor peripheral circulation [Fatal]
  - Status epilepticus [Fatal]
  - Hypotension [Fatal]
  - Renal failure acute [Fatal]
  - Liver injury [Fatal]
  - Disseminated intravascular coagulation [Fatal]
  - Adrenal haemorrhage [Fatal]
  - Peritoneal haemorrhage [Fatal]
  - Metabolic acidosis [Fatal]
  - Hyperkalaemia [Fatal]
  - Blood creatinine increased [Fatal]
  - C-reactive protein increased [Fatal]
  - Hyporeflexia [Fatal]
  - Central nervous system lesion [Fatal]
  - Nervous system disorder [Fatal]
  - Hepatic necrosis [Fatal]
  - Foetal exposure during pregnancy [Unknown]
  - Metabolic disorder [Fatal]
